FAERS Safety Report 24908988 (Version 1)
Quarter: 2025Q1

REPORT INFORMATION
  Report Type: Spontaneous
  Country: US (occurrence: US)
  Receive Date: 20250131
  Receipt Date: 20250131
  Transmission Date: 20250408
  Serious: Yes (Other)
  Sender: ABBVIE
  Company Number: US-ABBVIE-6108411

PATIENT
  Age: 75 Year
  Sex: Male
  Weight: 90.718 kg

DRUGS (13)
  1. LUPRON [Suspect]
     Active Substance: LEUPROLIDE ACETATE
     Indication: Prostate cancer
     Dosage: START DATE TEXT: MAY OR JUN-2023
     Route: 030
     Dates: start: 2023, end: 202408
  2. VITAMIN D3 [Concomitant]
     Active Substance: CHOLECALCIFEROL
     Indication: Vitamin supplementation
  3. IODINE (IODINE) [Concomitant]
     Active Substance: IODINE
     Indication: Routine health maintenance
  4. APIGENIN [Concomitant]
     Active Substance: APIGENIN
     Indication: Routine health maintenance
  5. ZINC [Concomitant]
     Active Substance: ZINC
     Indication: Mineral supplementation
  6. CALCIUM CITRATE [Concomitant]
     Active Substance: CALCIUM CITRATE
     Indication: Mineral supplementation
  7. HERBALS\TURMERIC [Concomitant]
     Active Substance: HERBALS\TURMERIC
     Indication: Routine health maintenance
  8. DIETARY SUPPLEMENT\HERBALS\MILK THISTLE [Concomitant]
     Active Substance: MILK THISTLE
     Indication: Routine health maintenance
  9. QUERCETIN [Concomitant]
     Active Substance: QUERCETIN
     Indication: Routine health maintenance
  10. LEVOCARNITINE [Concomitant]
     Active Substance: LEVOCARNITINE
     Indication: Routine health maintenance
  11. VITAMIN C [Concomitant]
     Active Substance: ASCORBIC ACID
     Indication: Vitamin supplementation
  12. IP-6 [Concomitant]
     Indication: Routine health maintenance
  13. ACETYLCYSTEINE [Concomitant]
     Active Substance: ACETYLCYSTEINE
     Indication: Routine health maintenance

REACTIONS (9)
  - Pancreatic failure [Recovering/Resolving]
  - Blood testosterone decreased [Unknown]
  - Emotional disorder [Not Recovered/Not Resolved]
  - Asthenia [Not Recovered/Not Resolved]
  - Diarrhoea [Recovering/Resolving]
  - Weight increased [Recovering/Resolving]
  - Flatulence [Recovering/Resolving]
  - Hot flush [Not Recovered/Not Resolved]
  - Mood swings [Not Recovered/Not Resolved]

NARRATIVE: CASE EVENT DATE: 20230101
